FAERS Safety Report 8901516 (Version 1)
Quarter: 2012Q4

REPORT INFORMATION
  Report Type: 
  Country: US (occurrence: US)
  Receive Date: 20121108
  Receipt Date: 20121108
  Transmission Date: 20130627
  Serious: No
  Sender: FDA-Public Use
  Company Number: US-VERTEX PHARMACEUTICAL INC.-2012-024195

PATIENT
  Age: 24 Year
  Sex: Female
  Weight: 52 kg

DRUGS (7)
  1. KALYDECO [Suspect]
     Indication: CYSTIC FIBROSIS
     Dosage: 150 mg, bid
     Route: 048
     Dates: start: 20120405, end: 20121104
  2. CREON [Concomitant]
     Indication: CYSTIC FIBROSIS
     Dosage: UNK
  3. ADEK [Concomitant]
     Indication: CYSTIC FIBROSIS
     Dosage: UNK
  4. NASONEX [Concomitant]
     Indication: CYSTIC FIBROSIS
     Dosage: UNK
  5. PULMOZYME [Concomitant]
     Indication: CYSTIC FIBROSIS
     Dosage: UNK
  6. ZITHROMAX [Concomitant]
  7. ZYRTEC [Concomitant]

REACTIONS (1)
  - Exposure during pregnancy [Not Recovered/Not Resolved]
